FAERS Safety Report 20154565 (Version 5)
Quarter: 2023Q1

REPORT INFORMATION
  Report Type: Report from Study
  Country: DE (occurrence: DE)
  Receive Date: 20211207
  Receipt Date: 20230216
  Transmission Date: 20230418
  Serious: Yes (Hospitalization)
  Sender: FDA-Public Use
  Company Number: DE-NOVARTISPH-NVSC2021DE195281

PATIENT
  Sex: Female
  Weight: 77 kg

DRUGS (18)
  1. MAYZENT [Suspect]
     Active Substance: SIPONIMOD
     Indication: Secondary progressive multiple sclerosis
     Dosage: 2 MG, QD
     Route: 048
     Dates: start: 20201006, end: 20210103
  2. MAYZENT [Suspect]
     Active Substance: SIPONIMOD
     Dosage: 2 MG, QD
     Route: 048
     Dates: start: 20210108, end: 20210519
  3. MAYZENT [Suspect]
     Active Substance: SIPONIMOD
     Dosage: 1 MG, QD
     Route: 048
     Dates: start: 20210520, end: 20211110
  4. MAYZENT [Suspect]
     Active Substance: SIPONIMOD
     Dosage: 1 MG, QD
     Route: 065
     Dates: start: 20220113
  5. MELPERONE HYDROCHLORIDE [Concomitant]
     Active Substance: MELPERONE HYDROCHLORIDE
     Indication: Mental disorder
     Dosage: 50 MG, QD
     Route: 065
     Dates: start: 20210819
  6. ATORVASTATIN [Concomitant]
     Active Substance: ATORVASTATIN
     Indication: Hypercholesterolaemia
     Dosage: 40 MG, QD ONCE IN MORNING
     Route: 065
  7. FUROSEMIDE [Concomitant]
     Active Substance: FUROSEMIDE
     Indication: Blood pressure measurement
     Dosage: 40 MG, QD
     Route: 065
  8. METFORMIN [Concomitant]
     Active Substance: METFORMIN HYDROCHLORIDE
     Indication: Diabetes mellitus
     Dosage: 1000 MG, QD (ONE DOSE FORM IN THE MORNING, ONE DOSE FORM IN THE EVENING)
     Route: 065
  9. PALEXIA [Concomitant]
     Active Substance: TAPENTADOL HYDROCHLORIDE
     Indication: Restless legs syndrome
     Dosage: 50 MG, QD (ONE DOSE FORM IN THE MORNING, ONE DOSE FORM IN THE EVENING)
     Route: 065
  10. PREGABALIN [Concomitant]
     Active Substance: PREGABALIN
     Indication: Pain
     Dosage: 100 MG, QD (ONE DOSE FORM IN THE MORNING, ONE DOSE FORM IN THE EVENING)
     Route: 065
  11. ROPINIROLE [Concomitant]
     Active Substance: ROPINIROLE
     Indication: Restless legs syndrome
     Dosage: 4 MG, QD
     Route: 065
  12. SELENASE [Concomitant]
     Indication: Selenium deficiency
     Dosage: UNK, QD, ONCE IN EVENING
     Route: 065
  13. SPIRONOLACTONE [Concomitant]
     Active Substance: SPIRONOLACTONE
     Indication: Fluid retention
     Dosage: 50 MG, QD  (QNCE AT NOON)
     Route: 065
  14. LEVOTHYROXINE SODIUM\POTASSIUM IODIDE [Concomitant]
     Active Substance: LEVOTHYROXINE SODIUM\POTASSIUM IODIDE
     Indication: Hyperthyroidism
     Dosage: 75 UG, QD (ONCE IN THE MORNING)
     Route: 065
  15. TOUJEO [Concomitant]
     Active Substance: INSULIN GLARGINE
     Indication: Diabetes mellitus
     Dosage: UNK UNK, QD (ONCE IN THE EVENING)
     Route: 065
     Dates: end: 20211118
  16. TRULICITY [Concomitant]
     Active Substance: DULAGLUTIDE
     Indication: Diabetes mellitus
     Dosage: 0.75 MG
     Route: 065
     Dates: start: 20211118
  17. DULOXETINE [Concomitant]
     Active Substance: DULOXETINE
     Indication: Depression
     Dosage: 30 MG, QD
     Route: 065
  18. CHOLECALCIFEROL [Concomitant]
     Active Substance: CHOLECALCIFEROL
     Indication: Vitamin D deficiency
     Dosage: 20 IU
     Route: 065
     Dates: start: 20220209

REACTIONS (6)
  - Vomiting [Recovering/Resolving]
  - Nausea [Recovering/Resolving]
  - Muscle tightness [Recovering/Resolving]
  - Hepatic cyst [Not Recovered/Not Resolved]
  - Haemangioma of liver [Not Recovered/Not Resolved]
  - Rash [Recovering/Resolving]

NARRATIVE: CASE EVENT DATE: 20210708
